FAERS Safety Report 18276046 (Version 2)
Quarter: 2020Q3

REPORT INFORMATION
  Report Type: Report from Study
  Country: None (occurrence: CA)
  Receive Date: 20200916
  Receipt Date: 20200922
  Transmission Date: 20201103
  Serious: No
  Sender: FDA-Public Use
  Company Number: CA-ABBVIE-20K-028-3565897-00

PATIENT
  Age: 74 Year
  Sex: Female

DRUGS (1)
  1. HUMIRA [Suspect]
     Active Substance: ADALIMUMAB
     Indication: RHEUMATOID ARTHRITIS
     Route: 058
     Dates: start: 20200826

REACTIONS (9)
  - Bradykinesia [Recovering/Resolving]
  - Haemoptysis [Recovering/Resolving]
  - Abdominal discomfort [Recovering/Resolving]
  - Sputum discoloured [Recovering/Resolving]
  - Gastric infection [Unknown]
  - Chest pain [Recovering/Resolving]
  - Blood pressure decreased [Unknown]
  - Gastroenteritis viral [Recovering/Resolving]
  - Vomiting [Recovering/Resolving]

NARRATIVE: CASE EVENT DATE: 202009
